FAERS Safety Report 20693564 (Version 6)
Quarter: 2025Q1

REPORT INFORMATION
  Report Type: Report from Study
  Country: BR (occurrence: BR)
  Receive Date: 20220411
  Receipt Date: 20250131
  Transmission Date: 20250409
  Serious: Yes (Disabling, Other)
  Sender: TAKEDA
  Company Number: BR-TAKEDA-2020TUS045103

PATIENT
  Age: 16 Year
  Sex: Male
  Weight: 45 kg

DRUGS (15)
  1. IDURSULFASE [Suspect]
     Active Substance: IDURSULFASE
     Indication: Mucopolysaccharidosis II
  2. IDURSULFASE [Suspect]
     Active Substance: IDURSULFASE
  3. IDURSULFASE [Suspect]
     Active Substance: IDURSULFASE
     Dosage: 5 DOSAGE FORM, 1/WEEK
     Dates: start: 20230915
  4. IDURSULFASE [Suspect]
     Active Substance: IDURSULFASE
     Dosage: 4 DOSAGE FORM, 1/WEEK
     Dates: start: 2010
  5. IDURSULFASE [Suspect]
     Active Substance: IDURSULFASE
     Dosage: 5 DOSAGE FORM, 1/WEEK
     Dates: start: 20230915
  6. IDURSULFASE [Suspect]
     Active Substance: IDURSULFASE
  7. IDURSULFASE [Suspect]
     Active Substance: IDURSULFASE
     Dosage: UNK, 1/WEEK
  8. IDURSULFASE [Suspect]
     Active Substance: IDURSULFASE
     Dosage: UNK, 1/WEEK
  9. CARBAMAZEPINE [Concomitant]
     Active Substance: CARBAMAZEPINE
  10. GABAPENTIN [Concomitant]
     Active Substance: GABAPENTIN
  11. RISPERIDONE [Concomitant]
     Active Substance: RISPERIDONE
  12. AZITHROMYCIN [Concomitant]
     Active Substance: AZITHROMYCIN
  13. CYCLOBENZAPRINE [Concomitant]
     Active Substance: CYCLOBENZAPRINE
  14. CARVEDILOL [Concomitant]
     Active Substance: CARVEDILOL
  15. MELATONIN [Concomitant]
     Active Substance: MELATONIN

REACTIONS (6)
  - COVID-19 [Recovered/Resolved]
  - Eating disorder symptom [Not Recovered/Not Resolved]
  - Influenza [Not Recovered/Not Resolved]
  - Off label use [Unknown]
  - Dose calculation error [Unknown]
  - Inappropriate schedule of product administration [Unknown]

NARRATIVE: CASE EVENT DATE: 20220301
